FAERS Safety Report 10985958 (Version 1)
Quarter: 2015Q1

REPORT INFORMATION
  Report Type: Spontaneous
  Country: US (occurrence: None)
  Receive Date: 20150313
  Receipt Date: 20150313
  Transmission Date: 20150721
  Serious: Yes (Other)
  Sender: FDA-Public Use
  Company Number: 1256382

PATIENT
  Age: 11 Year
  Sex: Male
  Weight: 71.2 kg

DRUGS (12)
  1. ALBUTEROL (SALBUTAMOL) [Concomitant]
     Active Substance: ALBUTEROL
  2. PREDNISONE. [Concomitant]
     Active Substance: PREDNISONE
  3. CLARITIN [Concomitant]
     Active Substance: LORATADINE
  4. VENTOLIN (SALBUTAMOL SULFATE) [Concomitant]
  5. PREVACID [Concomitant]
     Active Substance: LANSOPRAZOLE
  6. VENTOLIN HFA [Concomitant]
     Active Substance: ALBUTEROL SULFATE
  7. SYMBICORT (BUDESONIDE, FORMOTEROL FUMARATE) (INHALER) [Concomitant]
  8. XOLAIR [Suspect]
     Active Substance: OMALIZUMAB
     Indication: ASTHMA
     Dosage: 300 MG, 1 IN 4 WK, SUBCUTANEOUS
     Route: 058
     Dates: start: 20130318
  9. SINGULAIR [Concomitant]
     Active Substance: MONTELUKAST SODIUM
  10. PROAIR HFA [Concomitant]
     Active Substance: ALBUTEROL SULFATE
  11. FLUTICASONE [Concomitant]
     Active Substance: FLUTICASONE\FLUTICASONE PROPIONATE
  12. QVAR (BECLOMETASONE DIPROPIONATE) [Concomitant]

REACTIONS (6)
  - Oropharyngeal pain [None]
  - Hand fracture [None]
  - Nausea [None]
  - Somnolence [None]
  - Vomiting [None]
  - Asthma [None]
